FAERS Safety Report 5091059-X (Version None)
Quarter: 2006Q3

REPORT INFORMATION
  Report Type: 
  Country: None (occurrence: None)
  Receive Date: 20060829
  Receipt Date: 20060403
  Transmission Date: 20061208
  Serious: No
  Sender: FDA-Public Use
  Company Number: 0015306

PATIENT
  Age: 45 Year
  Sex: Female

DRUGS (2)
  1. ZOVIRAX [Suspect]
     Dosage: 5PCT UNKNOWN
     Route: 061
     Dates: start: 20060327
  2. KEPPRA [Concomitant]

REACTIONS (2)
  - DRUG INEFFECTIVE [None]
  - DRUG INTERACTION [None]
